FAERS Safety Report 6184942-5 (Version None)
Quarter: 2009Q2

REPORT INFORMATION
  Report Type: 
  Country: None (occurrence: None)
  Receive Date: 20090511
  Receipt Date: 20090507
  Transmission Date: 20091009
  Serious: Yes (Hospitalization, Disabling)
  Sender: FDA-Public Use
  Company Number: FR-BRISTOL-MYERS SQUIBB COMPANY-14468391

PATIENT
  Age: 34 Year
  Sex: Female
  Weight: 38 kg

DRUGS (7)
  1. SUSTIVA [Suspect]
     Indication: HIV INFECTION
     Dosage: DOSE REDUCED TO 400 MG/DAY; DOSE OF 400 MG WAS STARTED ON 22-DEC-2008
     Dates: start: 20081114
  2. FUZEON [Suspect]
     Indication: HIV INFECTION
     Dosage: 360 MG
     Dates: start: 20081114
  3. TRUVADA [Suspect]
     Indication: HIV INFECTION
     Route: 048
     Dates: start: 20081114
  4. RIFATER [Suspect]
     Indication: TUBERCULOSIS
     Dates: start: 20081114
  5. MYAMBUTOL [Suspect]
     Indication: TUBERCULOSIS
     Dosage: ALSO FROM 03FEB09 TO 25MAR09, 51DAYS ORALLY AS CONMED
     Dates: start: 20081114
  6. SPECIAFOLDINE [Concomitant]
     Indication: ANAEMIA
     Dates: start: 20081106
  7. BACTRIM [Concomitant]
     Indication: PROPHYLAXIS
     Dates: start: 20081114

REACTIONS (3)
  - IMMUNE RECONSTITUTION SYNDROME [None]
  - IMPAIRED GASTRIC EMPTYING [None]
  - LYMPHADENOPATHY [None]
